FAERS Safety Report 5734979-2 (Version None)
Quarter: 2008Q2

REPORT INFORMATION
  Report Type: 
  Country: None (occurrence: None)
  Receive Date: 20080508
  Receipt Date: 20080508
  Transmission Date: 20081010
  Serious: Yes (Other)
  Sender: FDA-Public Use
  Company Number: None

PATIENT
  Age: 44 Year
  Sex: Female
  Weight: 58.9676 kg

DRUGS (2)
  1. FENTANYL [Suspect]
     Indication: NEURALGIA
     Dosage: 50 EVERY 3 DAYS
     Dates: start: 20071201, end: 20080507
  2. FENTANYL [Suspect]
     Indication: POST PROCEDURAL COMPLICATION
     Dosage: 50 EVERY 3 DAYS
     Dates: start: 20071201, end: 20080507

REACTIONS (6)
  - DEVICE FAILURE [None]
  - DRUG WITHDRAWAL SYNDROME [None]
  - IMPAIRED WORK ABILITY [None]
  - INCORRECT DOSE ADMINISTERED [None]
  - PAIN [None]
  - PHARMACEUTICAL PRODUCT COMPLAINT [None]
